FAERS Safety Report 9530358 (Version 1)
Quarter: 2013Q3

REPORT INFORMATION
  Report Type: Report from Study
  Country: GB (occurrence: GB)
  Receive Date: 20130918
  Receipt Date: 20130918
  Transmission Date: 20140515
  Serious: Yes (Hospitalization)
  Sender: FDA-Public Use
  Company Number: GB-AMGEN-GBRCT2013065199

PATIENT
  Age: 45 Year
  Sex: Male
  Weight: 125 kg

DRUGS (2)
  1. ETANERCEPT [Suspect]
     Indication: PRODUCT USED FOR UNKNOWN INDICATION
     Dosage: 50 MG, WEEKLY
     Route: 065
     Dates: start: 20101117
  2. DOVOBET [Concomitant]
     Dosage: UNK
     Dates: start: 20130614

REACTIONS (2)
  - Bursitis [Recovered/Resolved]
  - Cellulitis [Recovered/Resolved]
